FAERS Safety Report 7495079-7 (Version None)
Quarter: 2011Q2

REPORT INFORMATION
  Report Type: 
  Country: None (occurrence: None)
  Receive Date: 20110520
  Receipt Date: 20110511
  Transmission Date: 20111010
  Serious: Yes (Life-Threatening, Hospitalization, Other)
  Sender: FDA-Public Use
  Company Number: FR-BAYER-2011-027150

PATIENT
  Sex: Female
  Weight: 55 kg

DRUGS (1)
  1. MIRENA [Suspect]
     Indication: INTRA-UTERINE CONTRACEPTIVE DEVICE
     Dosage: 20 ?G, CONT
     Route: 015
     Dates: start: 20090611, end: 20110317

REACTIONS (2)
  - PAIN [None]
  - DEEP VEIN THROMBOSIS [None]
